FAERS Safety Report 12548031 (Version 1)
Quarter: 2016Q3

REPORT INFORMATION
  Report Type: Spontaneous
  Country: US (occurrence: US)
  Receive Date: 20160712
  Receipt Date: 20160712
  Transmission Date: 20161109
  Serious: No
  Sender: FDA-Public Use
  Company Number: US-BAYER-2016-128930

PATIENT
  Age: 3 Year
  Sex: Male
  Weight: 11.34 kg

DRUGS (1)
  1. MIRALAX [Suspect]
     Active Substance: POLYETHYLENE GLYCOL 3350
     Indication: CONSTIPATION
     Dosage: (2.5 TEASPOON), ONCE
     Route: 048
     Dates: start: 20160628

REACTIONS (1)
  - Product use issue [None]
